FAERS Safety Report 9821558 (Version 1)
Quarter: 2014Q1

REPORT INFORMATION
  Report Type: Spontaneous
  Country: US (occurrence: None)
  Receive Date: 20140115
  Receipt Date: 20140115
  Transmission Date: 20141002
  Serious: Yes (Other)
  Sender: FDA-Public Use
  Company Number: None

PATIENT
  Age: 61 Year
  Sex: Female
  Weight: 55.34 kg

DRUGS (1)
  1. BIOTENE [Suspect]
     Indication: DRY MOUTH
     Dosage: 1 TBSP, 5XDAY
     Route: 048
     Dates: start: 20131101

REACTIONS (5)
  - Glossodynia [None]
  - Oral discomfort [None]
  - Throat irritation [None]
  - Skin exfoliation [None]
  - Product formulation issue [None]
